FAERS Safety Report 8064246-6 (Version None)
Quarter: 2012Q1

REPORT INFORMATION
  Report Type: 
  Country: None (occurrence: None)
  Receive Date: 20120123
  Receipt Date: 20120116
  Transmission Date: 20120608
  Serious: Yes (Death, Hospitalization, Other)
  Sender: FDA-Public Use
  Company Number: US-TEVA-318184USA

PATIENT
  Age: 54 Year
  Sex: Male

DRUGS (4)
  1. PYRIMETHAMINE TAB [Suspect]
     Indication: CEREBRAL TOXOPLASMOSIS
  2. CLINDAMYCIN [Suspect]
     Indication: CEREBRAL TOXOPLASMOSIS
  3. DEXAMETHASONE TAB [Suspect]
     Indication: BRAIN OEDEMA
  4. DAPSONE [Suspect]
     Indication: ANTIFUNGAL PROPHYLAXIS

REACTIONS (2)
  - ZYGOMYCOSIS [None]
  - PANCYTOPENIA [None]
